FAERS Safety Report 8060210-1 (Version None)
Quarter: 2012Q1

REPORT INFORMATION
  Report Type: 
  Country: None (occurrence: None)
  Receive Date: 20120119
  Receipt Date: 20120119
  Transmission Date: 20120608
  Serious: Yes (Hospitalization)
  Sender: FDA-Public Use
  Company Number: None

PATIENT
  Age: 25 Year
  Sex: Male
  Weight: 70.5 kg

DRUGS (7)
  1. KLONOPIN [Concomitant]
  2. DOXYCYCLINE [Concomitant]
  3. TRAMADOL HCL [Concomitant]
  4. HYCODAN [Concomitant]
  5. BC POWDER [Suspect]
     Indication: PAIN
     Dosage: PO CHRONIC
     Route: 048
  6. NEURONTIN [Concomitant]
  7. ALBUTEROL [Concomitant]

REACTIONS (1)
  - HAEMATEMESIS [None]
